FAERS Safety Report 6493847-1 (Version None)
Quarter: 2009Q4

REPORT INFORMATION
  Report Type: 
  Country: None (occurrence: None)
  Receive Date: 20091214
  Receipt Date: 20081111
  Transmission Date: 20100525
  Serious: No
  Sender: FDA-Public Use
  Company Number: US-BRISTOL-MYERS SQUIBB COMPANY-14402366

PATIENT
  Age: 60 Year
  Sex: Female
  Weight: 58 kg

DRUGS (5)
  1. ABILIFY [Suspect]
     Dates: start: 20081101, end: 20081110
  2. KLONOPIN [Concomitant]
  3. CHLORAL HYDRATE [Concomitant]
  4. ZANAFLEX [Concomitant]
  5. LIPITOR [Concomitant]

REACTIONS (2)
  - GAIT DISTURBANCE [None]
  - MUSCULOSKELETAL STIFFNESS [None]
